FAERS Safety Report 8852147 (Version 1)
Quarter: 2012Q4

REPORT INFORMATION
  Report Type: 
  Country: FR (occurrence: FR)
  Receive Date: 20121022
  Receipt Date: 20121022
  Transmission Date: 20130627
  Serious: Yes (Hospitalization, Other)
  Sender: FDA-Public Use
  Company Number: FR-PFIZER INC-2012254192

PATIENT
  Age: 80 Year
  Sex: Female

DRUGS (10)
  1. FARMORUBICINE [Suspect]
     Indication: BREAST CANCER
     Dosage: 30 mg, cyclic
     Route: 042
     Dates: start: 20101123, end: 20101123
  2. FARMORUBICINE [Suspect]
     Dosage: 30 mg, cyclic
     Dates: start: 20101129, end: 20101129
  3. FARMORUBICINE [Suspect]
     Dosage: 30 mg, cyclic
     Dates: start: 20101208, end: 20101208
  4. TAXOL [Suspect]
     Indication: BREAST CANCER
     Dosage: 60 mg/m2, 1x/day, i.e. 105 mg per course
     Route: 042
     Dates: start: 20101222, end: 20110119
  5. APROVEL [Concomitant]
     Dosage: UNK
     Dates: start: 2010
  6. LASILIX [Concomitant]
     Dosage: UNK
     Dates: start: 2011
  7. COUMADINE [Concomitant]
     Dosage: 2 mg
     Dates: start: 201101
  8. CERIS [Concomitant]
     Dosage: 20 mg
     Dates: start: 2010
  9. SPASFON-LYOC [Concomitant]
     Dosage: UNK
  10. PARACETAMOL [Concomitant]

REACTIONS (4)
  - Arrhythmia supraventricular [Recovered/Resolved with Sequelae]
  - Cardiac failure [Recovered/Resolved with Sequelae]
  - Asthma [Unknown]
  - Bronchitis [Unknown]
